FAERS Safety Report 6003345-7 (Version None)
Quarter: 2008Q4

REPORT INFORMATION
  Report Type: 
  Country: None (occurrence: None)
  Receive Date: 20081216
  Receipt Date: 20081115
  Transmission Date: 20090506
  Serious: No
  Sender: FDA-Public Use
  Company Number: US-BAYER-200838776NA

PATIENT
  Sex: Male

DRUGS (1)
  1. AVELOX [Suspect]
     Indication: UNEVALUABLE EVENT
     Route: 048

REACTIONS (5)
  - ABDOMINAL PAIN [None]
  - DIZZINESS [None]
  - INSOMNIA [None]
  - NAUSEA [None]
  - PARAESTHESIA [None]
